FAERS Safety Report 10442355 (Version 1)
Quarter: 2014Q3

REPORT INFORMATION
  Report Type: Spontaneous
  Country: BE (occurrence: BE)
  Receive Date: 20140909
  Receipt Date: 20140909
  Transmission Date: 20150326
  Serious: Yes (Hospitalization)
  Sender: FDA-Public Use
  Company Number: BE-PFIZER INC-2014248853

PATIENT
  Age: 18 Year
  Sex: Male

DRUGS (1)
  1. AMLODIPINE BESILATE [Suspect]
     Active Substance: AMLODIPINE BESYLATE
     Dosage: 700 MG, SINGLE
     Route: 048

REACTIONS (5)
  - Toxicity to various agents [Recovered/Resolved]
  - Hypotension [Not Recovered/Not Resolved]
  - Intentional overdose [Recovered/Resolved]
  - Respiratory failure [Recovered/Resolved]
  - Pulmonary oedema [Recovered/Resolved]
